FAERS Safety Report 18812370 (Version 1)
Quarter: 2021Q1

REPORT INFORMATION
  Report Type: Report from Study
  Country: EG (occurrence: EG)
  Receive Date: 20210130
  Receipt Date: 20210130
  Transmission Date: 20210419
  Serious: Yes (Other)
  Sender: FDA-Public Use
  Company Number: EG-ACCORD-216115

PATIENT

DRUGS (1)
  1. MITOMYCIN. [Suspect]
     Active Substance: MITOMYCIN
     Indication: DEVELOPMENTAL GLAUCOMA
     Dosage: 0.4MG/ML FOR 1MIN

REACTIONS (1)
  - Blebitis [Unknown]
